FAERS Safety Report 18523793 (Version 3)
Quarter: 2021Q4

REPORT INFORMATION
  Report Type: Spontaneous
  Country: CA (occurrence: CA)
  Receive Date: 20201119
  Receipt Date: 20211001
  Transmission Date: 20220303
  Serious: Yes (Other)
  Sender: FDA-Public Use
  Company Number: CA-SAMSUNG BIOEPIS-SB-2020-34456

PATIENT
  Age: 49 Year
  Sex: Male
  Weight: 128 kg

DRUGS (8)
  1. INFLIXIMAB [Suspect]
     Active Substance: INFLIXIMAB
     Indication: Crohn^s disease
     Route: 042
  2. ASACOL [Concomitant]
     Active Substance: MESALAMINE
     Indication: Product used for unknown indication
     Dosage: UNKNOWN, TABLET (ENTERIC COATED)
     Route: 065
  3. ASACOL [Concomitant]
     Active Substance: MESALAMINE
     Dosage: TABLET (ENTERIC COATED)
     Route: 065
  4. ASACOL [Concomitant]
     Active Substance: MESALAMINE
     Route: 065
  5. LOMOTIL [Concomitant]
     Active Substance: ATROPINE SULFATE\DIPHENOXYLATE HYDROCHLORIDE
     Indication: Product used for unknown indication
     Dosage: UNKNOWN
     Route: 065
  6. LOMOTIL [Concomitant]
     Active Substance: ATROPINE SULFATE\DIPHENOXYLATE HYDROCHLORIDE
     Route: 065
  7. REMICADE [Concomitant]
     Active Substance: INFLIXIMAB
     Indication: Product used for unknown indication
     Dosage: UNKNOWN, POWDER FOR SOLUTION INTRAVENOUS
     Route: 065
  8. REMICADE [Concomitant]
     Active Substance: INFLIXIMAB
     Route: 065

REACTIONS (8)
  - Condition aggravated [Not Recovered/Not Resolved]
  - Hypertension [Not Recovered/Not Resolved]
  - Malaise [Not Recovered/Not Resolved]
  - Myalgia [Not Recovered/Not Resolved]
  - Weight decreased [Not Recovered/Not Resolved]
  - Drug level decreased [Not Recovered/Not Resolved]
  - Inappropriate schedule of product administration [Not Recovered/Not Resolved]
  - Off label use [Not Recovered/Not Resolved]
